FAERS Safety Report 6587753-1 (Version None)
Quarter: 2010Q1

REPORT INFORMATION
  Report Type: 
  Country: None (occurrence: None)
  Receive Date: 20100217
  Receipt Date: 20100217
  Transmission Date: 20100710
  Serious: Yes (Other)
  Sender: FDA-Public Use
  Company Number: None

PATIENT
  Age: 80 Year
  Sex: Male
  Weight: 73.4827 kg

DRUGS (2)
  1. INTEGRILIN 2MCG/KG [Suspect]
     Dates: start: 20100205, end: 20100206
  2. HEPARIN [Suspect]
     Dates: start: 20100205, end: 20100206

REACTIONS (2)
  - INFUSION SITE HAEMORRHAGE [None]
  - PLATELET COUNT DECREASED [None]
